FAERS Safety Report 6739050-9 (Version None)
Quarter: 2010Q2

REPORT INFORMATION
  Report Type: 
  Country: None (occurrence: None)
  Receive Date: 20100524
  Receipt Date: 20100512
  Transmission Date: 20101027
  Serious: Yes (Hospitalization)
  Sender: FDA-Public Use
  Company Number: GB-ELI_LILLY_AND_COMPANY-GB200912006178

PATIENT
  Sex: Female
  Weight: 64 kg

DRUGS (1)
  1. CYMBALTA [Suspect]
     Indication: DEPRESSION
     Dosage: 60 MG, DAILY (1/D)
     Route: 048
     Dates: start: 20091012, end: 20091201

REACTIONS (18)
  - ABDOMINAL DISCOMFORT [None]
  - ARTHRALGIA [None]
  - DIZZINESS [None]
  - FATIGUE [None]
  - FEELING ABNORMAL [None]
  - HEADACHE [None]
  - HYPERHIDROSIS [None]
  - HYPERVENTILATION [None]
  - HYPOAESTHESIA [None]
  - LETHARGY [None]
  - MYALGIA [None]
  - PALPITATIONS [None]
  - PARAESTHESIA [None]
  - PRODUCTIVE COUGH [None]
  - SLEEP DISORDER [None]
  - TERMINAL INSOMNIA [None]
  - URINARY TRACT DISORDER [None]
  - WEIGHT DECREASED [None]
